FAERS Safety Report 6510100-8 (Version None)
Quarter: 2009Q4

REPORT INFORMATION
  Report Type: 
  Country: None (occurrence: None)
  Receive Date: 20091222
  Receipt Date: 20091019
  Transmission Date: 20100525
  Serious: No
  Sender: FDA-Public Use
  Company Number: US-BAUSCH-2009BL005256

PATIENT
  Age: 63 Year
  Sex: Male

DRUGS (4)
  1. ALAWAY [Suspect]
     Indication: EYE PRURITUS
     Route: 047
     Dates: start: 20091018, end: 20091018
  2. ATENOLOL [Concomitant]
     Indication: HYPERTENSION
  3. VITAMINS [Concomitant]
  4. FISH OIL [Concomitant]

REACTIONS (3)
  - EYELID OEDEMA [None]
  - INSTILLATION SITE IRRITATION [None]
  - OCULAR HYPERAEMIA [None]
